FAERS Safety Report 12665484 (Version 1)
Quarter: 2016Q3

REPORT INFORMATION
  Report Type: Report from Study
  Country: US (occurrence: US)
  Receive Date: 20160818
  Receipt Date: 20160818
  Transmission Date: 20161109
  Serious: Yes (Hospitalization, Other)
  Sender: FDA-Public Use
  Company Number: US-ACTELION-A-US2015-115054

PATIENT
  Age: 44 Year
  Sex: Female
  Weight: 69.84 kg

DRUGS (5)
  1. OPSUMIT [Suspect]
     Active Substance: MACITENTAN
     Indication: PULMONARY ARTERIAL HYPERTENSION
     Dosage: 10 MG, QD
     Route: 048
     Dates: start: 20150310
  2. LASIX [Suspect]
     Active Substance: FUROSEMIDE
     Indication: FLUID RETENTION
     Dosage: 20 MG, QD
     Route: 065
     Dates: start: 20150316
  3. REMODULIN [Suspect]
     Active Substance: TREPROSTINIL
     Indication: PULMONARY ARTERIAL HYPERTENSION
     Dosage: 64 NG/KG, PER MIN
     Route: 042
     Dates: start: 20140724
  4. REMODULIN [Suspect]
     Active Substance: TREPROSTINIL
     Dosage: 64 NG/KG, PER MIN
     Route: 042
     Dates: start: 20150226
  5. LETAIRIS [Concomitant]
     Active Substance: AMBRISENTAN

REACTIONS (27)
  - Liver disorder [Unknown]
  - Hypersensitivity [Unknown]
  - Skin burning sensation [Unknown]
  - Bacterial infection [Unknown]
  - Syncope [Unknown]
  - Fatigue [Unknown]
  - Haematochezia [Unknown]
  - Gastrointestinal disorder [Unknown]
  - Concomitant disease aggravated [Unknown]
  - Fluid retention [Unknown]
  - Nasal congestion [Unknown]
  - Transplant evaluation [Unknown]
  - Presyncope [Unknown]
  - Emphysema [Unknown]
  - Epistaxis [Unknown]
  - Abdominal pain [Unknown]
  - Nausea [Unknown]
  - Pruritus [Unknown]
  - Constipation [Unknown]
  - Heart rate increased [Unknown]
  - Irritability [Unknown]
  - Functional gastrointestinal disorder [Unknown]
  - General physical health deterioration [Unknown]
  - Weight decreased [Unknown]
  - Malaise [Unknown]
  - Vomiting [Unknown]
  - Hypotension [Unknown]

NARRATIVE: CASE EVENT DATE: 2015
